FAERS Safety Report 8861794 (Version 1)
Quarter: 2012Q4

REPORT INFORMATION
  Report Type: Spontaneous
  Country: GB (occurrence: None)
  Receive Date: 20121023
  Receipt Date: 20121023
  Transmission Date: 20130627
  Serious: Yes (Hospitalization, Other)
  Sender: FDA-Public Use
  Company Number: AUR-APL-2012-04459

PATIENT
  Age: 13 Year
  Sex: Male

DRUGS (2)
  1. LEVETIRACETAM [Suspect]
     Indication: EPILEPSY
     Dosage: (750 mg, 2 in 1 D)
     Route: 048
  2. KEPPRA(LEVETIRACETAM) [Suspect]
     Indication: DRUG USE FOR UNKNOWN INDICATION
     Dosage: (750 mg, 2 in 1 D)
     Route: 048

REACTIONS (4)
  - Wrong technique in drug usage process [None]
  - Convulsion [None]
  - Product substitution issue [None]
  - Medication error [None]
